FAERS Safety Report 14979302 (Version 4)
Quarter: 2018Q4

REPORT INFORMATION
  Report Type: Report from Study
  Country: JP (occurrence: JP)
  Receive Date: 20180606
  Receipt Date: 20181210
  Transmission Date: 20190204
  Serious: Yes (Other)
  Sender: FDA-Public Use
  Company Number: JP-JNJFOC-20180305145

PATIENT
  Age: 61 Year
  Sex: Female
  Weight: 45 kg

DRUGS (5)
  1. SAMTIREL [Concomitant]
     Active Substance: ATOVAQUONE
     Indication: PROPHYLAXIS
     Dosage: PERORAL MEDICINE
     Route: 048
     Dates: start: 20170111
  2. ACICLOVIR [Concomitant]
     Active Substance: ACYCLOVIR
     Indication: PROPHYLAXIS
     Dosage: PERORAL MEDICINE
     Route: 048
     Dates: start: 20160229
  3. IMBRUVICA [Suspect]
     Active Substance: IBRUTINIB
     Indication: MANTLE CELL LYMPHOMA RECURRENT
     Route: 048
     Dates: start: 20170131, end: 20170208
  4. IMBRUVICA [Suspect]
     Active Substance: IBRUTINIB
     Indication: MANTLE CELL LYMPHOMA RECURRENT
     Dosage: 140MG EVERY OTHER DAY
     Route: 048
     Dates: start: 20170209
  5. IMBRUVICA [Suspect]
     Active Substance: IBRUTINIB
     Indication: MANTLE CELL LYMPHOMA RECURRENT
     Route: 048
     Dates: start: 20170117, end: 20170124

REACTIONS (4)
  - Purpura [Unknown]
  - Platelet count decreased [Recovering/Resolving]
  - Diarrhoea [Recovering/Resolving]
  - Petechiae [Recovered/Resolved]

NARRATIVE: CASE EVENT DATE: 20170119
